FAERS Safety Report 19555328 (Version 1)
Quarter: 2021Q3

REPORT INFORMATION
  Report Type: Spontaneous
  Country: US (occurrence: US)
  Receive Date: 20210715
  Receipt Date: 20210715
  Transmission Date: 20211014
  Serious: No
  Sender: FDA-Public Use
  Company Number: US-SA-2021SA229323

PATIENT
  Sex: Female

DRUGS (12)
  1. LOSARTAN POTASSIUM. [Concomitant]
     Active Substance: LOSARTAN POTASSIUM
  2. METHOTREXATE. [Concomitant]
     Active Substance: METHOTREXATE
  3. ATORVASTATIN CALCIUM. [Concomitant]
     Active Substance: ATORVASTATIN CALCIUM
  4. TRULICITY [Concomitant]
     Active Substance: DULAGLUTIDE
  5. EFFEXOR [Concomitant]
     Active Substance: VENLAFAXINE HYDROCHLORIDE
     Dosage: 200MG
  6. HYDROCHLOROTHIAZIDE. [Concomitant]
     Active Substance: HYDROCHLOROTHIAZIDE
  7. PREDNISONE. [Concomitant]
     Active Substance: PREDNISONE
  8. HYDROXYCHLOROQUINE [Concomitant]
     Active Substance: HYDROXYCHLOROQUINE
  9. KEVZARA [Suspect]
     Active Substance: SARILUMAB
     Indication: ARTHROPATHY
     Dosage: 200 MG, Q15D
     Route: 058
     Dates: start: 202102
  10. ALLEGRA ALLERGY [Concomitant]
     Active Substance: FEXOFENADINE HYDROCHLORIDE
  11. FOLIC ACID. [Concomitant]
     Active Substance: FOLIC ACID
  12. NOVOLOG [Concomitant]
     Active Substance: INSULIN ASPART

REACTIONS (1)
  - Therapeutic product ineffective for unapproved indication [Unknown]

NARRATIVE: CASE EVENT DATE: 202102
